FAERS Safety Report 26030580 (Version 2)
Quarter: 2025Q4

REPORT INFORMATION
  Report Type: Spontaneous
  Country: IN (occurrence: IN)
  Receive Date: 20251112
  Receipt Date: 20251203
  Transmission Date: 20260118
  Serious: Yes (Other)
  Sender: SOMERSET THERAPEUTICS, LLC
  Company Number: IN-MIT-25-75-IN-2025-SOM-LIT-00103

PATIENT
  Age: 76 Year
  Sex: Male

DRUGS (1)
  1. LATANOPROST [Suspect]
     Active Substance: LATANOPROST
     Indication: Open angle glaucoma
     Route: 065

REACTIONS (2)
  - Ophthalmic herpes simplex [Recovered/Resolved]
  - Corneal endotheliitis [Recovered/Resolved]
